FAERS Safety Report 9064475 (Version 1)
Quarter: 2013Q1

REPORT INFORMATION
  Report Type: Spontaneous
  Country: FR (occurrence: FR)
  Receive Date: 20130128
  Receipt Date: 20130128
  Transmission Date: 20140127
  Serious: Yes (Disabling)
  Sender: FDA-Public Use
  Company Number: FR-JNJFOC-20130110497

PATIENT
  Age: 54 Year
  Sex: Male

DRUGS (2)
  1. ACTIFED [Suspect]
     Indication: NASOPHARYNGITIS
     Route: 048
  2. ACTIFED [Suspect]
     Indication: NASOPHARYNGITIS
     Route: 048

REACTIONS (2)
  - Papilloedema [Recovering/Resolving]
  - Visual acuity reduced [Not Recovered/Not Resolved]
